FAERS Safety Report 25001471 (Version 1)
Quarter: 2025Q1

REPORT INFORMATION
  Report Type: Spontaneous
  Country: GB (occurrence: GB)
  Receive Date: 20250223
  Receipt Date: 20250223
  Transmission Date: 20250408
  Serious: Yes (Death)
  Sender: JOHNSON AND JOHNSON
  Company Number: GB-BAYER-2025A025366

PATIENT

DRUGS (1)
  1. RIVAROXABAN [Suspect]
     Active Substance: RIVAROXABAN
     Indication: Product used for unknown indication
     Route: 048

REACTIONS (1)
  - Death [Fatal]
